FAERS Safety Report 7189409-3 (Version None)
Quarter: 2010Q4

REPORT INFORMATION
  Report Type: 
  Country: None (occurrence: None)
  Receive Date: 20101222
  Receipt Date: 20101213
  Transmission Date: 20110411
  Serious: Yes (Hospitalization, Other)
  Sender: FDA-Public Use
  Company Number: FR-AMGEN-US285047

PATIENT

DRUGS (7)
  1. ENBREL [Suspect]
     Dosage: 25 MG, 2 TIMES/WK
     Route: 058
     Dates: start: 20080101, end: 20080615
  2. ENBREL [Suspect]
     Dosage: 25 MG, 2 TIMES/WK
     Route: 058
     Dates: start: 20090701, end: 20100401
  3. DEXAMETHASONE [Concomitant]
     Dosage: UNK UNK, UNK
  4. VEXOL [Concomitant]
     Dosage: UNK UNK, UNK
  5. OXYTETRACYCLINE [Concomitant]
     Dosage: UNK UNK, UNK
  6. PREDNISONE [Concomitant]
     Dosage: 5 MG, QD
     Route: 048
  7. RETINOL [Concomitant]
     Dosage: UNK UNK, UNK

REACTIONS (3)
  - BASAL CELL CARCINOMA [None]
  - OPTIC NEURITIS [None]
  - SUPERFICIAL SPREADING MELANOMA STAGE UNSPECIFIED [None]
